FAERS Safety Report 14549563 (Version 7)
Quarter: 2019Q1

REPORT INFORMATION
  Report Type: Spontaneous
  Country: US (occurrence: US)
  Receive Date: 20180219
  Receipt Date: 20190205
  Transmission Date: 20190417
  Serious: No
  Sender: FDA-Public Use
  Company Number: US-GLAXOSMITHKLINE-US2018GSK027322

PATIENT
  Age: 70 Year
  Sex: Female
  Weight: 112.93 kg

DRUGS (3)
  1. SEREVENT DISKUS [Suspect]
     Active Substance: SALMETEROL XINAFOATE
     Dosage: UNK
     Route: 055
  2. SEREVENT DISKUS [Suspect]
     Active Substance: SALMETEROL XINAFOATE
     Dosage: UNK
     Dates: start: 2012
  3. SEREVENT DISKUS [Suspect]
     Active Substance: SALMETEROL XINAFOATE
     Indication: ASTHMA
     Dosage: 2 PUFF(S), QD
     Route: 055
     Dates: start: 2012

REACTIONS (11)
  - Asthma [Unknown]
  - Chest discomfort [Recovered/Resolved]
  - Nasopharyngitis [Unknown]
  - Multiple allergies [Unknown]
  - Muscle tightness [Recovered/Resolved]
  - Wheezing [Unknown]
  - Malaise [Unknown]
  - Intentional product misuse [Unknown]
  - Sensitivity to weather change [Unknown]
  - Underdose [Unknown]
  - Product complaint [Unknown]

NARRATIVE: CASE EVENT DATE: 20180216
